FAERS Safety Report 6197715-4 (Version None)
Quarter: 2009Q2

REPORT INFORMATION
  Report Type: 
  Country: None (occurrence: None)
  Receive Date: 20090514
  Receipt Date: 20081117
  Transmission Date: 20091009
  Serious: Yes (Hospitalization)
  Sender: FDA-Public Use
  Company Number: WAES 0811USA03815

PATIENT
  Age: 74 Year
  Sex: Female

DRUGS (4)
  1. HYDRODIURIL [Suspect]
     Dosage: 25 MG/DAILY/PO
     Route: 048
     Dates: end: 20040804
  2. KLOR-CON [Concomitant]
  3. NORVASC [Concomitant]
  4. ALBUTEROL [Concomitant]

REACTIONS (1)
  - HYPOKALAEMIA [None]
